FAERS Safety Report 9998051 (Version 1)
Quarter: 2014Q1

REPORT INFORMATION
  Report Type: Spontaneous
  Country: FR (occurrence: FR)
  Receive Date: 20140311
  Receipt Date: 20140311
  Transmission Date: 20141002
  Serious: Yes (Other)
  Sender: FDA-Public Use
  Company Number: FR-CELGENEUS-056-50794-14023927

PATIENT
  Age: 72 Year
  Sex: Male

DRUGS (2)
  1. VIDAZA [Suspect]
     Indication: MYELODYSPLASTIC SYNDROME
     Route: 058
     Dates: start: 20130214
  2. ARANESP [Concomitant]
     Indication: MYELODYSPLASTIC SYNDROME
     Route: 041
     Dates: start: 20130214

REACTIONS (2)
  - Amaurosis [Not Recovered/Not Resolved]
  - Retinal vein occlusion [Not Recovered/Not Resolved]
